FAERS Safety Report 9415388 (Version 1)
Quarter: 2013Q3

REPORT INFORMATION
  Report Type: Spontaneous
  Country: US (occurrence: US)
  Receive Date: 20130723
  Receipt Date: 20130723
  Transmission Date: 20140515
  Serious: Yes (Hospitalization)
  Sender: FDA-Public Use
  Company Number: US-B.I. PHARMACEUTICALS,INC./RIDGEFIELD-2013-BI-21233BP

PATIENT
  Sex: Female
  Weight: 66 kg

DRUGS (11)
  1. PRADAXA [Suspect]
     Indication: HYPERTENSION
     Dosage: 300 MG
     Route: 048
     Dates: start: 2012
  2. PRADAXA [Suspect]
     Indication: CEREBROVASCULAR ACCIDENT PROPHYLAXIS
  3. METFORMIN [Concomitant]
     Indication: TYPE 2 DIABETES MELLITUS
     Dosage: 2000 MG
     Route: 048
  4. GLIPIZIDE [Concomitant]
     Indication: TYPE 2 DIABETES MELLITUS
     Dosage: 20 MG
     Route: 048
  5. VERAPAMIL [Concomitant]
     Indication: HYPERTENSION
     Dosage: 240 MG
     Route: 048
  6. ASPIRIN [Concomitant]
     Dosage: 162 MG
     Route: 048
  7. LISINOPRIL [Concomitant]
     Indication: HYPERTENSION
     Dosage: 40 MG
     Route: 048
  8. SOTALOL HCL [Concomitant]
     Indication: HYPERTENSION
     Dosage: 160 MG
     Route: 048
  9. SOTALOL HCL [Concomitant]
     Indication: ARRHYTHMIA
  10. VITAMIN D [Concomitant]
     Dosage: 5000 MG
     Route: 048
  11. MULTIVITAMIN [Concomitant]
     Route: 048

REACTIONS (5)
  - Myocardial infarction [Recovered/Resolved]
  - Parkinson^s disease [Not Recovered/Not Resolved]
  - Fall [Recovered/Resolved]
  - Contusion [Recovered/Resolved]
  - Off label use [Recovered/Resolved]
